FAERS Safety Report 6135077-9 (Version None)
Quarter: 2009Q1

REPORT INFORMATION
  Report Type: 
  Country: None (occurrence: None)
  Receive Date: 20090325
  Receipt Date: 20090308
  Transmission Date: 20090719
  Serious: Yes (Hospitalization)
  Sender: FDA-Public Use
  Company Number: 2006S1005344

PATIENT
  Age: 56 Year
  Sex: Female
  Weight: 83.9154 kg

DRUGS (20)
  1. PHOSPHOSODA GINGER LEMON [Suspect]
     Indication: COLON OPERATION
     Dosage: 90 ML; TOTAL; PO
     Route: 048
     Dates: start: 20050209, end: 20050209
  2. PHOSPHOSODA GINGER LEMON [Suspect]
     Indication: LAPAROSCOPIC SURGERY
     Dosage: 90 ML; TOTAL; PO
     Route: 048
     Dates: start: 20050209, end: 20050209
  3. LISINOPRIL [Concomitant]
  4. HYDROCHLOROTHIAZIDE [Concomitant]
  5. LIPITOR [Concomitant]
  6. PREMPRO [Concomitant]
  7. ATENOLOL [Concomitant]
  8. PREVACID [Concomitant]
  9. ALBUTEROL [Concomitant]
  10. ZESTRIL [Concomitant]
  11. ADVIL LIQUI-GELS [Concomitant]
  12. METOPROLOL [Concomitant]
  13. ZITHROMAX [Concomitant]
  14. TYLENOL (CAPLET) [Concomitant]
  15. PREMARIN [Concomitant]
  16. SEREVENT [Concomitant]
  17. NEXIUM [Concomitant]
  18. VIOXX [Concomitant]
  19. FLEET ENEMA (SODIUM PHOSPHATE) [Concomitant]
  20. GAS X [Concomitant]

REACTIONS (4)
  - ANAEMIA [None]
  - BLOOD PRESSURE DECREASED [None]
  - RENAL FAILURE ACUTE [None]
  - RENAL FAILURE CHRONIC [None]
